FAERS Safety Report 7906053-8 (Version None)
Quarter: 2011Q4

REPORT INFORMATION
  Report Type: 
  Country: None (occurrence: None)
  Receive Date: 20111110
  Receipt Date: 20111110
  Transmission Date: 20120403
  Serious: Yes (Hospitalization, Other)
  Sender: FDA-Public Use
  Company Number: None

PATIENT
  Age: 47 Year
  Sex: Female
  Weight: 99.6 kg

DRUGS (9)
  1. CLARITIN [Concomitant]
     Route: 048
  2. ELAVIL [Concomitant]
  3. BRENTUXIMAB [Suspect]
     Indication: HODGKIN'S DISEASE
     Dosage: 180 MG
     Route: 042
     Dates: start: 20110915, end: 20111010
  4. ALLOPURINOL [Concomitant]
     Route: 048
  5. BACTRIM [Concomitant]
  6. DILAUDID [Concomitant]
  7. DOCUSATE, [Concomitant]
     Route: 048
  8. PRILOSEC [Concomitant]
     Route: 048
  9. AMBIEN [Concomitant]

REACTIONS (10)
  - DIARRHOEA [None]
  - EYELID PTOSIS [None]
  - VOMITING [None]
  - CONFUSIONAL STATE [None]
  - MENTAL STATUS CHANGES [None]
  - BONE MARROW FAILURE [None]
  - LIVER FUNCTION TEST ABNORMAL [None]
  - COGNITIVE DISORDER [None]
  - NAUSEA [None]
  - PARAESTHESIA [None]
